FAERS Safety Report 9219908 (Version 1)
Quarter: 2013Q1

REPORT INFORMATION
  Report Type: Spontaneous
  Country: US (occurrence: None)
  Receive Date: 20120829
  Receipt Date: 20120829
  Transmission Date: 20140127
  Serious: Yes (Life-Threatening, Hospitalization, Other)
  Sender: FDA-Public Use
  Company Number: WAES 1110USA00125

PATIENT
  Age: 49 Year
  Sex: Female

DRUGS (6)
  1. ODT MAXALT-MLT UNK [Suspect]
     Indication: MIGRAINE
     Dosage: Q2H
     Route: 048
     Dates: start: 20110817, end: 20110823
  2. ALLEGRA [Concomitant]
  3. OMNARIS [Concomitant]
  4. PROAIR HFA [Concomitant]
  5. LISINOPRIL [Concomitant]
  6. LOSARTAN POTASSIUM [Concomitant]

REACTIONS (2)
  - Chest pain [None]
  - Palpitations [None]
